FAERS Safety Report 7022639-X (Version None)
Quarter: 2010Q3

REPORT INFORMATION
  Report Type: 
  Country: None (occurrence: None)
  Receive Date: 20100930
  Receipt Date: 20100920
  Transmission Date: 20110219
  Serious: Yes (Other)
  Sender: FDA-Public Use
  Company Number: AU-PFIZER INC-2010119935

PATIENT

DRUGS (5)
  1. ZOLOFT [Suspect]
     Indication: MIGRAINE
     Dosage: 50 MG, UNK
  2. ZOLOFT [Suspect]
     Dosage: 37.5 MG, UNK
  3. ZOLOFT [Suspect]
     Dosage: 12.5 MG, UNK
  4. ZOLOFT [Suspect]
     Dosage: 6 MG, ALTERNATE DAY
  5. ZOLOFT [Suspect]
     Dosage: 25 MG, UNK

REACTIONS (9)
  - APHASIA [None]
  - CEREBROVASCULAR ACCIDENT [None]
  - CONFUSIONAL STATE [None]
  - HYPERTENSION [None]
  - MULTIPLE SCLEROSIS [None]
  - PANIC ATTACK [None]
  - SPINAL DISORDER [None]
  - SUICIDAL IDEATION [None]
  - WITHDRAWAL SYNDROME [None]
